FAERS Safety Report 5936299-X (Version None)
Quarter: 2008Q4

REPORT INFORMATION
  Report Type: 
  Country: None (occurrence: None)
  Receive Date: 20081030
  Receipt Date: 20081024
  Transmission Date: 20090506
  Serious: Yes (Death, Life-Threatening)
  Sender: FDA-Public Use
  Company Number: FR-AVENTIS-200813699FR

PATIENT
  Age: 49 Year
  Sex: Male

DRUGS (13)
  1. LOVENOX [Suspect]
     Route: 058
     Dates: start: 20080528, end: 20080612
  2. LOVENOX [Suspect]
     Route: 058
     Dates: start: 20080616, end: 20080616
  3. HEPARIN [Suspect]
     Route: 058
     Dates: start: 20080612, end: 20080615
  4. TAXOTERE [Concomitant]
     Indication: NON-SMALL CELL LUNG CANCER
     Route: 042
     Dates: start: 20080613, end: 20080613
  5. ARIXTRA [Concomitant]
     Indication: DRUG USE FOR UNKNOWN INDICATION
     Dates: start: 20080527, end: 20080528
  6. REFLUDAN [Concomitant]
     Indication: DRUG USE FOR UNKNOWN INDICATION
     Dates: start: 20080617, end: 20080619
  7. AUGMENTIN '125' [Concomitant]
     Indication: DRUG USE FOR UNKNOWN INDICATION
     Dates: start: 20080606, end: 20080617
  8. BIPROFENID [Concomitant]
     Indication: DRUG USE FOR UNKNOWN INDICATION
     Route: 048
     Dates: start: 20080604, end: 20080616
  9. INIPOMP                            /01263201/ [Concomitant]
     Indication: DRUG USE FOR UNKNOWN INDICATION
     Dates: end: 20080616
  10. INIPOMP                            /01263201/ [Concomitant]
     Dates: start: 20080617, end: 20080619
  11. SOLUPRED                           /00016201/ [Concomitant]
     Indication: DRUG USE FOR UNKNOWN INDICATION
     Route: 048
     Dates: start: 20080527, end: 20080528
  12. SOLUPRED                           /00016201/ [Concomitant]
     Route: 048
     Dates: start: 20080603, end: 20080611
  13. SOLUPRED                           /00016201/ [Concomitant]
     Route: 048
     Dates: start: 20080616, end: 20080617

REACTIONS (1)
  - HEPARIN-INDUCED THROMBOCYTOPENIA [None]
